FAERS Safety Report 9124147 (Version 3)
Quarter: 2014Q1

REPORT INFORMATION
  Report Type: Spontaneous
  Country: US (occurrence: US)
  Receive Date: 20130227
  Receipt Date: 20140206
  Transmission Date: 20141002
  Serious: Yes (Hospitalization, Other)
  Sender: FDA-Public Use
  Company Number: US-B.I. PHARMACEUTICALS,INC./RIDGEFIELD-2013-BI-04667BP

PATIENT
  Sex: Female
  Weight: 64.5 kg

DRUGS (13)
  1. PRADAXA [Suspect]
     Indication: ATRIAL FIBRILLATION
     Dosage: 300 MG
     Route: 048
     Dates: start: 20110618, end: 20120218
  2. BENICAR [Concomitant]
     Dosage: 20 MG
     Route: 048
  3. K-DUR [Concomitant]
     Dosage: 20 MEQ
     Route: 048
  4. LASIX [Concomitant]
     Dosage: 80 MG
     Route: 048
  5. NORVASC [Concomitant]
     Dosage: 10 MG
     Route: 048
  6. PAXIL [Concomitant]
     Dosage: 10 MG
     Route: 048
  7. SIMCOR [Concomitant]
     Route: 048
  8. ALLOPURINOL [Concomitant]
     Dosage: 300 MG
     Route: 048
  9. ASPIRIN [Concomitant]
     Indication: ATRIAL FIBRILLATION
     Dosage: 81 MG
     Route: 048
  10. CALCIUM CARBONATE-VITAMIN D [Concomitant]
     Route: 048
  11. METOLAZONE [Concomitant]
     Dosage: 2.5 MG
     Route: 048
  12. METOPROLOL [Concomitant]
     Dosage: 100 MG
     Route: 048
  13. SOTALOL AF [Concomitant]
     Dosage: 320 MG
     Route: 048

REACTIONS (4)
  - Gastrointestinal haemorrhage [Recovered/Resolved]
  - Haemorrhagic anaemia [Unknown]
  - Renal failure acute [Unknown]
  - Epistaxis [Unknown]
